FAERS Safety Report 9893280 (Version 1)
Quarter: 2014Q1

REPORT INFORMATION
  Report Type: Spontaneous
  Country: US (occurrence: US)
  Receive Date: 20140213
  Receipt Date: 20140213
  Transmission Date: 20141002
  Serious: Yes (Death)
  Sender: FDA-Public Use
  Company Number: US-BEH-2014040569

PATIENT
  Age: 67 Year
  Sex: Male

DRUGS (1)
  1. ZEMAIRA [Suspect]
     Indication: ALPHA-1 ANTI-TRYPSIN DEFICIENCY

REACTIONS (1)
  - Death [Fatal]
